FAERS Safety Report 9144262 (Version 1)
Quarter: 2013Q1

REPORT INFORMATION
  Report Type: Spontaneous
  Country: US (occurrence: US)
  Receive Date: 20130306
  Receipt Date: 20130306
  Transmission Date: 20140127
  Serious: Yes (Other)
  Sender: FDA-Public Use
  Company Number: US-ASTRAZENECA-2013SE13073

PATIENT
  Age: 80 Year
  Sex: Male

DRUGS (3)
  1. SYMBICORT [Suspect]
     Indication: CHRONIC OBSTRUCTIVE PULMONARY DISEASE
     Dosage: UNKNOWN DOSE AND FREQUENCY
     Route: 055
     Dates: start: 201206
  2. COREG [Concomitant]
  3. METFORMIN [Concomitant]

REACTIONS (2)
  - Pneumonia [Unknown]
  - Bronchitis [Unknown]
